FAERS Safety Report 5473193-5 (Version None)
Quarter: 2007Q4

REPORT INFORMATION
  Report Type: 
  Country: None (occurrence: None)
  Receive Date: 20071001
  Receipt Date: 20070920
  Transmission Date: 20080405
  Serious: Yes (Other)
  Sender: FDA-Public Use
  Company Number: US-JNJFOC-20070905374

PATIENT

DRUGS (2)
  1. INFLIXIMAB [Suspect]
     Indication: UVEITIS
     Route: 042
  2. METHOTREXATE [Concomitant]

REACTIONS (1)
  - HISTOPLASMOSIS DISSEMINATED [None]
